FAERS Safety Report 5201628-1 (Version None)
Quarter: 2007Q1

REPORT INFORMATION
  Report Type: 
  Country: None (occurrence: None)
  Receive Date: 20070104
  Receipt Date: 20061226
  Transmission Date: 20070707
  Serious: Yes (Hospitalization)
  Sender: FDA-Public Use
  Company Number: ST-2006-009418

PATIENT
  Age: 67 Year
  Sex: Male

DRUGS (13)
  1. OLMETEC [Suspect]
     Indication: HYPERTENSION
     Dosage: 20 MG QD PO
     Route: 048
     Dates: start: 20061121, end: 20061122
  2. MUCOSTA [Suspect]
     Indication: PROPHYLAXIS
     Dosage: 1 DF TID PO
     Route: 048
     Dates: start: 20061121, end: 20061122
  3. SELOKEN [Concomitant]
  4. SODIUM BICARBONATE [Concomitant]
  5. ZANTAC [Concomitant]
  6. NIFESLOW [Concomitant]
  7. ADALAT [Concomitant]
  8. NORVASC [Concomitant]
  9. FUROSEMIDE [Concomitant]
  10. DIART [Concomitant]
  11. SORBITOL [Concomitant]
  12. D-SORBITOL [Concomitant]
  13. LASIX [Concomitant]

REACTIONS (2)
  - PANCYTOPENIA [None]
  - RESPIRATORY DISORDER [None]
